FAERS Safety Report 5346194-5 (Version None)
Quarter: 2007Q2

REPORT INFORMATION
  Report Type: 
  Country: None (occurrence: None)
  Receive Date: 20070605
  Receipt Date: 20070530
  Transmission Date: 20071010
  Serious: Yes (Hospitalization)
  Sender: FDA-Public Use
  Company Number: KR-SANOFI-SYNTHELABO-F01200700454

PATIENT
  Sex: Female
  Weight: 62.6 kg

DRUGS (3)
  1. OXALIPLATIN [Suspect]
     Indication: HEPATIC NEOPLASM MALIGNANT
     Route: 042
     Dates: start: 20070326, end: 20070326
  2. DOXORUBICIN HCL [Suspect]
     Route: 042
     Dates: start: 20070326, end: 20070326
  3. SYNTHROID [Concomitant]
     Indication: HYPOTHYROIDISM
     Dosage: 150 MCG
     Route: 048
     Dates: start: 20070406, end: 20070411

REACTIONS (1)
  - PANCYTOPENIA [None]
